FAERS Safety Report 4821789-3 (Version None)
Quarter: 2005Q4

REPORT INFORMATION
  Report Type: 
  Country: None (occurrence: None)
  Receive Date: 20051107
  Receipt Date: 20051026
  Transmission Date: 20060501
  Serious: Yes (Death, Hospitalization)
  Sender: FDA-Public Use
  Company Number: US-AMGEN-US155658

PATIENT
  Sex: Female
  Weight: 69.9 kg

DRUGS (21)
  1. NEULASTA [Suspect]
     Indication: CHEMOTHERAPY
     Route: 058
     Dates: start: 20051004
  2. ADRIAMYCIN PFS [Suspect]
     Dates: start: 20051003
  3. CYCLOPHOSPHAMIDE [Suspect]
     Dates: start: 20051003
  4. DECADRON SRC [Concomitant]
     Dates: start: 20051003
  5. ALOXI [Concomitant]
     Dates: start: 20051003
  6. ARANESP [Concomitant]
     Indication: ANAEMIA OF MALIGNANT DISEASE
     Dates: start: 20051017
  7. DEMADEX [Concomitant]
  8. POTASSIUM [Concomitant]
  9. COZAAR [Concomitant]
  10. SYNTHROID [Concomitant]
  11. ZOCOR [Concomitant]
  12. ATENOLOL [Concomitant]
  13. LORAZEPAM [Concomitant]
  14. ASPIRIN [Concomitant]
  15. PREDNISONE [Concomitant]
  16. EFFEXOR [Concomitant]
  17. PRILOSEC [Concomitant]
  18. OSCAL [Concomitant]
  19. FOLATE SODIUM [Concomitant]
  20. GLUCOSAMINE [Concomitant]
  21. CHONDROITIN [Concomitant]

REACTIONS (2)
  - SEPTIC SHOCK [None]
  - STOMATITIS [None]
